FAERS Safety Report 6388199-1 (Version None)
Quarter: 2009Q4

REPORT INFORMATION
  Report Type: 
  Country: None (occurrence: None)
  Receive Date: 20091001
  Receipt Date: 20091001
  Transmission Date: 20100525
  Serious: Yes (Life-Threatening, Other)
  Sender: FDA-Public Use
  Company Number: None

PATIENT
  Sex: Female
  Weight: 43.5453 kg

DRUGS (2)
  1. TIZANIDINE HCL [Suspect]
     Indication: SLEEP DISORDER
     Dosage: 90 3 TIMES DAILY
     Dates: start: 20090209
  2. METHOCARBAMOL [Suspect]
     Indication: MUSCLE SPASMS
     Dosage: 60 3 TIMES DAILY
     Dates: start: 20090209

REACTIONS (5)
  - DEPRESSION [None]
  - HYPERHIDROSIS [None]
  - INFLUENZA [None]
  - NASOPHARYNGITIS [None]
  - RASH [None]
